FAERS Safety Report 18220406 (Version 4)
Quarter: 2021Q1

REPORT INFORMATION
  Report Type: Spontaneous
  Country: GB (occurrence: GB)
  Receive Date: 20200902
  Receipt Date: 20210331
  Transmission Date: 20210419
  Serious: Yes (Hospitalization, Other)
  Sender: FDA-Public Use
  Company Number: GB-TERSERA THERAPEUTICS LLC-TSR2018000574

PATIENT

DRUGS (27)
  1. ZOLADEX [Suspect]
     Active Substance: GOSERELIN ACETATE
     Dosage: UNKNOWN
     Route: 058
     Dates: start: 201708
  2. ZOLADEX [Suspect]
     Active Substance: GOSERELIN ACETATE
     Dosage: UNKNOWN
     Route: 058
     Dates: start: 201708
  3. LETROZOLE. [Suspect]
     Active Substance: LETROZOLE
     Indication: METASTASES TO LIVER
     Dosage: 2.5 MILLIGRAM, QD
     Route: 065
     Dates: start: 201708
  4. LETROZOLE. [Suspect]
     Active Substance: LETROZOLE
     Dosage: UNKNOWN
     Route: 065
     Dates: start: 201710
  5. ZOLADEX [Suspect]
     Active Substance: GOSERELIN ACETATE
     Dosage: UNK
     Route: 058
  6. ZOLADEX [Suspect]
     Active Substance: GOSERELIN ACETATE
     Dosage: UNKNOWN
     Route: 058
     Dates: start: 201710
  7. LETROZOLE. [Suspect]
     Active Substance: LETROZOLE
     Indication: BREAST CANCER FEMALE
     Dosage: 2.5 MILLIGRAM, QD
     Route: 065
     Dates: start: 201708
  8. LETROZOLE. [Suspect]
     Active Substance: LETROZOLE
     Dosage: UNKNOWN
     Route: 065
     Dates: start: 201710
  9. IBRANCE [Suspect]
     Active Substance: PALBOCICLIB
     Dosage: 100 MILLIGRAM, QD/UNKNOWN
     Route: 065
     Dates: start: 201708
  10. ZOLADEX [Suspect]
     Active Substance: GOSERELIN ACETATE
     Dosage: UNK
     Route: 058
  11. ZOLADEX [Suspect]
     Active Substance: GOSERELIN ACETATE
     Indication: BREAST CANCER FEMALE
     Dosage: UNK
     Route: 058
  12. LETROZOLE. [Suspect]
     Active Substance: LETROZOLE
     Dosage: 2.5 MILLIGRAM, QD
     Route: 065
     Dates: start: 201708
  13. LETROZOLE. [Suspect]
     Active Substance: LETROZOLE
     Dosage: UNKNOWN
     Route: 065
     Dates: start: 201710
  14. IBRANCE [Suspect]
     Active Substance: PALBOCICLIB
     Dosage: UNKNOWN
     Route: 048
     Dates: start: 201710
  15. IBRANCE [Suspect]
     Active Substance: PALBOCICLIB
     Dosage: UNKNOWN
     Route: 048
     Dates: start: 201710
  16. IBRANCE [Suspect]
     Active Substance: PALBOCICLIB
     Dosage: UNKNOWN
     Route: 048
     Dates: start: 201710
  17. ZOLADEX [Suspect]
     Active Substance: GOSERELIN ACETATE
     Indication: METASTASES TO LIVER
     Dosage: UNK
     Route: 058
  18. ZOLADEX [Suspect]
     Active Substance: GOSERELIN ACETATE
     Dosage: UNKNOWN
     Route: 058
     Dates: start: 201710
  19. IBRANCE [Suspect]
     Active Substance: PALBOCICLIB
     Indication: METASTASES TO LIVER
     Dosage: 100 MILLIGRAM, QD/UNKNOWN
     Route: 065
  20. IBRANCE [Suspect]
     Active Substance: PALBOCICLIB
     Dosage: 100 MILLIGRAM, QD/UNKNOWN
     Route: 065
     Dates: start: 201708
  21. ZOLADEX [Suspect]
     Active Substance: GOSERELIN ACETATE
     Dosage: UNKNOWN
     Route: 058
     Dates: start: 201708
  22. ZOLADEX [Suspect]
     Active Substance: GOSERELIN ACETATE
     Dosage: UNKNOWN
     Route: 058
     Dates: start: 201708
  23. ZOLADEX [Suspect]
     Active Substance: GOSERELIN ACETATE
     Dosage: UNKNOWN
     Route: 058
     Dates: start: 201710
  24. ZOLADEX [Suspect]
     Active Substance: GOSERELIN ACETATE
     Dosage: UNKNOWN
     Route: 058
     Dates: start: 201710
  25. IBRANCE [Suspect]
     Active Substance: PALBOCICLIB
     Indication: METASTASES TO LIVER
     Dosage: 100 MILLIGRAM, QD/ UNKNOWN
     Route: 065
  26. IBRANCE [Suspect]
     Active Substance: PALBOCICLIB
     Dosage: 100 MILLIGRAM, QD/UNKNOWN
     Route: 065
  27. IBRANCE [Suspect]
     Active Substance: PALBOCICLIB
     Dosage: 100 MILLIGRAM, QD/UNKNOWN
     Route: 065
     Dates: start: 201708

REACTIONS (6)
  - Oropharyngeal pain [Recovered/Resolved]
  - Cough [Recovered/Resolved]
  - SARS-CoV-2 test positive [Recovered/Resolved]
  - Neoplasm progression [Unknown]
  - C-reactive protein increased [Unknown]
  - Febrile neutropenia [Recovered/Resolved]

NARRATIVE: CASE EVENT DATE: 201712
